FAERS Safety Report 8927638 (Version 2)
Quarter: 2012Q4

REPORT INFORMATION
  Report Type: 
  Country: SE (occurrence: SE)
  Receive Date: 20121127
  Receipt Date: 20121203
  Transmission Date: 20130627
  Serious: Yes (Hospitalization)
  Sender: FDA-Public Use
  Company Number: SE-JNJFOC-20121110440

PATIENT
  Age: 63 Year
  Sex: Male

DRUGS (2)
  1. REMICADE [Suspect]
     Indication: ANKYLOSING SPONDYLITIS
     Route: 042
     Dates: start: 2005, end: 201107
  2. REMICADE [Suspect]
     Indication: ANKYLOSING SPONDYLITIS
     Route: 042
     Dates: start: 20121101

REACTIONS (6)
  - Dehydration [Unknown]
  - Vomiting [Unknown]
  - Blood pressure systolic decreased [Unknown]
  - Nausea [Unknown]
  - Aspartate aminotransferase increased [Recovered/Resolved]
  - Drug effect decreased [Recovered/Resolved]
